FAERS Safety Report 5358218-X (Version None)
Quarter: 2007Q2

REPORT INFORMATION
  Report Type: 
  Country: None (occurrence: None)
  Receive Date: 20070530
  Receipt Date: 20061205
  Transmission Date: 20071010
  Serious: Yes (Hospitalization, Other)
  Sender: FDA-Public Use
  Company Number: US200603004609

PATIENT
  Age: 45 Year
  Sex: Female
  Weight: 74.8 kg

DRUGS (6)
  1. ZYPREXA [Suspect]
     Dosage: 10 MG
     Dates: start: 19970201, end: 20010101
  2. EFFEXOR [Concomitant]
  3. INSULIN (INSULIN) [Concomitant]
  4. AVANDIA /UNK/ (ROSIGLITAZONE MALEATE) [Concomitant]
  5. SEROQUEL /UNK/ (QUETIAPINE FUMARATE) [Concomitant]
  6. CELEXA [Concomitant]

REACTIONS (3)
  - DIABETES MELLITUS [None]
  - HYPERGLYCAEMIA [None]
  - PANCREATITIS [None]
